FAERS Safety Report 4363952-4 (Version None)
Quarter: 2004Q2

REPORT INFORMATION
  Report Type: 
  Country: None (occurrence: None)
  Receive Date: 20040520
  Receipt Date: 20040305
  Transmission Date: 20050107
  Serious: No
  Sender: FDA-Public Use
  Company Number: 2004-06780

PATIENT
  Age: 38 Year
  Sex: Male

DRUGS (2)
  1. HEPSERA [Suspect]
     Indication: HEPATITIS B
     Dates: start: 20040201
  2. TYLENOL [Concomitant]

REACTIONS (2)
  - ALOPECIA [None]
  - ASTHENIA [None]
